FAERS Safety Report 10199547 (Version 1)
Quarter: 2014Q2

REPORT INFORMATION
  Report Type: Spontaneous
  Country: US (occurrence: None)
  Receive Date: 20140523
  Receipt Date: 20140523
  Transmission Date: 20141212
  Serious: No
  Sender: FDA-Public Use
  Company Number: None

PATIENT
  Age: 32 Year
  Sex: Female
  Weight: 97.07 kg

DRUGS (1)
  1. ASCLERA [Suspect]
     Dosage: LEGS BOTH

REACTIONS (5)
  - Chills [None]
  - Fatigue [None]
  - Asthenia [None]
  - Somnolence [None]
  - Hypersomnia [None]
